FAERS Safety Report 8640784 (Version 5)
Quarter: 2013Q1

REPORT INFORMATION
  Report Type: Report from Study
  Country: FR (occurrence: FR)
  Receive Date: 20120628
  Receipt Date: 20130114
  Transmission Date: 20140127
  Serious: Yes (Other)
  Sender: FDA-Public Use
  Company Number: FR-PFIZER INC-2012151962

PATIENT
  Age: 63 Year
  Sex: Female
  Weight: 62 kg

DRUGS (1)
  1. CRIZOTINIB [Suspect]
     Indication: LUNG ADENOCARCINOMA STAGE III
     Dosage: 250 MG, 2X/DAY
     Route: 048
     Dates: start: 20110808

REACTIONS (7)
  - Renal failure [Recovered/Resolved]
  - Transaminases increased [Unknown]
  - Neutropenia [Recovering/Resolving]
  - Nausea [Not Recovered/Not Resolved]
  - Photopsia [Not Recovered/Not Resolved]
  - Oedema peripheral [Recovering/Resolving]
  - Asthenia [Unknown]
